FAERS Safety Report 7607631-6 (Version None)
Quarter: 2011Q3

REPORT INFORMATION
  Report Type: 
  Country: None (occurrence: None)
  Receive Date: 20110713
  Receipt Date: 20110512
  Transmission Date: 20111222
  Serious: Yes (Death, Hospitalization)
  Sender: FDA-Public Use
  Company Number: PHHY2011TW41009

PATIENT
  Sex: Female
  Weight: 45 kg

DRUGS (1)
  1. EXJADE [Suspect]
     Indication: IRON OVERLOAD
     Dosage: 1000 MG/DAY
     Route: 048
     Dates: start: 20100826

REACTIONS (8)
  - OXYGEN SATURATION DECREASED [None]
  - SEPTIC SHOCK [None]
  - SEPSIS [None]
  - BRADYCARDIA [None]
  - BLOOD PRESSURE DECREASED [None]
  - PNEUMONIA [None]
  - COUGH [None]
  - PYREXIA [None]
